FAERS Safety Report 10372114 (Version 1)
Quarter: 2014Q3

REPORT INFORMATION
  Report Type: Spontaneous
  Country: US (occurrence: US)
  Receive Date: 20140808
  Receipt Date: 20140808
  Transmission Date: 20150326
  Serious: No
  Sender: FDA-Public Use
  Company Number: US-ASTRAZENECA-2014SE54913

PATIENT
  Age: 72 Year
  Sex: Female
  Weight: 72.6 kg

DRUGS (11)
  1. SYMBICORT [Suspect]
     Active Substance: BUDESONIDE\FORMOTEROL FUMARATE DIHYDRATE
     Indication: CHRONIC OBSTRUCTIVE PULMONARY DISEASE
     Dosage: 160/4.5 MCG, 2 PUFFS BID
     Route: 055
     Dates: start: 20140617, end: 20140715
  2. PROAIR HFA [Concomitant]
     Active Substance: ALBUTEROL SULFATE
     Route: 055
  3. LIPITOR [Concomitant]
     Active Substance: ATORVASTATIN CALCIUM
  4. MULTIVITAMIN [Concomitant]
     Active Substance: VITAMINS
  5. NASONEX [Concomitant]
     Active Substance: MOMETASONE FUROATE
  6. HYDROCODONE [Concomitant]
     Active Substance: HYDROCODONE
  7. TYLENOL [Concomitant]
     Active Substance: ACETAMINOPHEN
  8. NASOPRIL [Concomitant]
  9. PERFOROMIST [Concomitant]
     Active Substance: FORMOTEROL FUMARATE DIHYDRATE
     Route: 055
  10. SPIRIVA [Concomitant]
     Active Substance: TIOTROPIUM BROMIDE MONOHYDRATE
     Route: 055
  11. METFORMIN [Concomitant]
     Active Substance: METFORMIN HYDROCHLORIDE

REACTIONS (3)
  - Oral pain [Not Recovered/Not Resolved]
  - Lip blister [Recovering/Resolving]
  - Lip swelling [Recovering/Resolving]

NARRATIVE: CASE EVENT DATE: 20140715
